FAERS Safety Report 4462293-4 (Version None)
Quarter: 2004Q3

REPORT INFORMATION
  Report Type: 
  Country: None (occurrence: None)
  Receive Date: 20040924
  Receipt Date: 20040910
  Transmission Date: 20050211
  Serious: Yes (Other)
  Sender: FDA-Public Use
  Company Number: 2004066320

PATIENT
  Age: 62 Year
  Sex: Female

DRUGS (1)
  1. ZOLOFT [Suspect]
     Indication: DEPRESSION

REACTIONS (3)
  - BREAST CANCER [None]
  - MEMORY IMPAIRMENT [None]
  - PERSONALITY CHANGE [None]
